FAERS Safety Report 9847259 (Version 1)
Quarter: 2014Q1

REPORT INFORMATION
  Report Type: Spontaneous
  Country: US (occurrence: US)
  Receive Date: 20140127
  Receipt Date: 20140127
  Transmission Date: 20141002
  Serious: Yes (Hospitalization)
  Sender: FDA-Public Use
  Company Number: US-DYAX CORP.-2013DX000126

PATIENT
  Age: 39 Year
  Sex: Female
  Weight: 85.35 kg

DRUGS (12)
  1. KALBITOR [Suspect]
     Indication: HEREDITARY ANGIOEDEMA
     Route: 058
     Dates: start: 20130621, end: 20130621
  2. KALBITOR [Suspect]
     Route: 058
     Dates: start: 20130621, end: 20130621
  3. KALBITOR [Suspect]
     Route: 058
     Dates: start: 20130621, end: 20130621
  4. KALBITOR [Suspect]
     Route: 058
     Dates: start: 201301
  5. CINRYZE [Concomitant]
     Indication: HEREDITARY ANGIOEDEMA
     Route: 042
     Dates: start: 201301
  6. DANAZOL [Concomitant]
     Indication: HEREDITARY ANGIOEDEMA
     Route: 065
     Dates: start: 201301
  7. REGLAN [Concomitant]
     Indication: IMPAIRED GASTRIC EMPTYING
     Route: 048
  8. HYDROCHLOROTHIAZIDE [Concomitant]
     Indication: HYPERTENSION
     Route: 048
  9. MIRALAX [Concomitant]
     Indication: PRODUCT USED FOR UNKNOWN INDICATION
     Route: 065
  10. DILAUDID [Concomitant]
     Indication: PRODUCT USED FOR UNKNOWN INDICATION
     Route: 065
  11. DEXILANT [Concomitant]
     Indication: PRODUCT USED FOR UNKNOWN INDICATION
     Route: 065
  12. METFORMIN [Concomitant]
     Indication: PRODUCT USED FOR UNKNOWN INDICATION

REACTIONS (4)
  - Hereditary angioedema [Recovered/Resolved]
  - Extra dose administered [Unknown]
  - Off label use [Unknown]
  - Drug administration error [Unknown]
